FAERS Safety Report 9515156 (Version 1)
Quarter: 2013Q1

REPORT INFORMATION
  Report Type: Spontaneous
  Country: US (occurrence: None)
  Receive Date: 20130305
  Receipt Date: 20130305
  Transmission Date: 20140127
  Serious: Yes (Hospitalization)
  Sender: FDA-Public Use
  Company Number: 163-21880-12103619

PATIENT
  Age: 72 Year
  Sex: Male

DRUGS (9)
  1. REVLIMID [Suspect]
     Indication: PLASMA CELL MYELOMA
     Dosage: 15 MG, 21 IN 28 D, PO
     Route: 048
     Dates: start: 200802
  2. DEXAMETHASONE (DEXAMETHASONE) (UNKNOWN) [Concomitant]
  3. AMLODIPINE (AMLODIPINE) (UNKNOWN) [Concomitant]
  4. OMEPRAZOLE (OMEPRAZOLE) (UNKNOWN) [Concomitant]
  5. TAMSULOSIN (TAMSULOSIN) (UNKNOWN) [Concomitant]
  6. ALBUTEROL (SALBUTAMOL) (UNKNOWN) [Concomitant]
  7. GABAPENTIN (GABAPENTIN) (UNKNOWN) (GABAPENTIN) [Concomitant]
  8. CYANOCOBALAMIN  (CYANOCOBALAMN) (UNKNOWN) [Concomitant]
  9. MEGESTROL (MEGESTROL) (UNKNOWN) [Concomitant]

REACTIONS (2)
  - Pneumonia [None]
  - Pancytopenia [None]
